FAERS Safety Report 8923897 (Version 1)
Quarter: 2012Q4

REPORT INFORMATION
  Report Type: 
  Country: SE (occurrence: SE)
  Receive Date: 20121126
  Receipt Date: 20121126
  Transmission Date: 20130627
  Serious: Yes (Other)
  Sender: FDA-Public Use
  Company Number: SE-BAYER-2012-121544

PATIENT
  Sex: Female

DRUGS (3)
  1. NEOVLETTA [Suspect]
     Indication: CONTRACEPTION
  2. YASMIN [Suspect]
     Indication: CONTRACEPTION
  3. LEVONORGESTREL [Suspect]
     Indication: CONTRACEPTION
     Dosage: UNK
     Route: 059
     Dates: start: 20120414

REACTIONS (6)
  - Suicidal ideation [None]
  - Mental disorder [None]
  - Asthenia [None]
  - Vaginal haemorrhage [None]
  - Menorrhagia [Not Recovered/Not Resolved]
  - Fatigue [None]
